FAERS Safety Report 4281691-5 (Version None)
Quarter: 2004Q1

REPORT INFORMATION
  Report Type: 
  Country: None (occurrence: None)
  Receive Date: 20040129
  Receipt Date: 20031216
  Transmission Date: 20041129
  Serious: Yes (Hospitalization)
  Sender: FDA-Public Use
  Company Number: PHHO2003JP16328

PATIENT
  Age: 54 Year
  Sex: Male
  Weight: 67 kg

DRUGS (6)
  1. DIOVAN [Suspect]
     Indication: ESSENTIAL HYPERTENSION
     Dosage: 80 MG/DAY
     Route: 048
     Dates: start: 20021113, end: 20030224
  2. DIOVAN [Suspect]
     Dosage: 160 MG/DAY
     Route: 048
     Dates: start: 20030225
  3. DIOVAN [Suspect]
     Dosage: 80 MG/DAY
  4. ACTOS [Concomitant]
     Indication: DIABETES MELLITUS
  5. AMARYL [Concomitant]
     Indication: DIABETES MELLITUS
  6. AMLODIN [Concomitant]
     Indication: HYPERTENSION

REACTIONS (8)
  - ACUTE MYOCARDIAL INFARCTION [None]
  - ATRIAL FIBRILLATION [None]
  - CARDIAC FAILURE [None]
  - CARDIAC FAILURE CONGESTIVE [None]
  - CHEST PAIN [None]
  - CORONARY ARTERY STENOSIS [None]
  - ELECTROCARDIOGRAM ST SEGMENT ELEVATION [None]
  - STENT PLACEMENT [None]
